FAERS Safety Report 9769825 (Version 1)
Quarter: 2013Q4

REPORT INFORMATION
  Report Type: Spontaneous
  Country: US (occurrence: US)
  Receive Date: 20131218
  Receipt Date: 20131218
  Transmission Date: 20140711
  Serious: No
  Sender: FDA-Public Use
  Company Number: US-VERTEX PHARMACEUTICALS INC-AE-2011-000643

PATIENT
  Sex: 0

DRUGS (7)
  1. INCIVEK [Suspect]
     Indication: HEPATITIS C
     Route: 048
     Dates: start: 20110725
  2. RIBAVIRIN [Concomitant]
     Indication: HEPATITIS C
     Route: 048
     Dates: start: 20110725
  3. PEGINTRON [Concomitant]
     Indication: HEPATITIS C
     Route: 058
     Dates: start: 20110328
  4. ASACOL [Concomitant]
     Route: 048
  5. BUSPAR [Concomitant]
     Route: 048
  6. LEXAPRO [Concomitant]
     Route: 048
  7. TRAZODONE [Concomitant]

REACTIONS (1)
  - Musculoskeletal chest pain [Not Recovered/Not Resolved]
